FAERS Safety Report 11758276 (Version 1)
Quarter: 2015Q4

REPORT INFORMATION
  Report Type: Spontaneous
  Country: US (occurrence: None)
  Receive Date: 20151119
  Receipt Date: 20151119
  Transmission Date: 20160304
  Serious: No
  Sender: FDA-Public Use
  Company Number: None

PATIENT
  Age: 37 Year
  Sex: Female

DRUGS (1)
  1. VENLAFAXINE [Suspect]
     Active Substance: VENLAFAXINE HYDROCHLORIDE
     Indication: MAJOR DEPRESSION
     Route: 048
     Dates: start: 201301, end: 201312

REACTIONS (5)
  - Psychotic disorder [None]
  - Suicidal ideation [None]
  - Pain [None]
  - Weight increased [None]
  - No therapeutic response [None]

NARRATIVE: CASE EVENT DATE: 201301
